FAERS Safety Report 10093334 (Version 1)
Quarter: 2014Q2

REPORT INFORMATION
  Report Type: Spontaneous
  Country: US (occurrence: US)
  Receive Date: 20140421
  Receipt Date: 20140421
  Transmission Date: 20141212
  Serious: No
  Sender: FDA-Public Use
  Company Number: US-SA-2013SA110724

PATIENT
  Age: 86 Year
  Sex: Female

DRUGS (12)
  1. ALLEGRA [Suspect]
     Indication: HYPERSENSITIVITY
     Route: 048
  2. SYNTHROID [Concomitant]
  3. LOSARTAN [Concomitant]
  4. HYDROCHLOROTHIAZIDE [Concomitant]
  5. OMEPRAZOLE [Concomitant]
  6. ASPIRIN [Concomitant]
  7. VITAMIN D [Concomitant]
  8. VITAMIN B12 [Concomitant]
  9. VITAMIN C [Concomitant]
  10. CALCIUM [Concomitant]
  11. DOCUSATE/SENNA ALEXANDRINA [Concomitant]
  12. VITAMINS [Concomitant]

REACTIONS (5)
  - Dysphonia [Unknown]
  - Asthenia [Unknown]
  - Gait disturbance [Unknown]
  - Arthropathy [Unknown]
  - Osteoporosis [Unknown]
